FAERS Safety Report 4490608-X (Version None)
Quarter: 2004Q4

REPORT INFORMATION
  Report Type: 
  Country: None (occurrence: None)
  Receive Date: 20041027
  Receipt Date: 20041011
  Transmission Date: 20050328
  Serious: No
  Sender: FDA-Public Use
  Company Number: 9013

PATIENT
  Age: 47 Year
  Sex: Male

DRUGS (4)
  1. MORPHINE [Suspect]
     Indication: POSTOPERATIVE ANALGESIA
     Dosage: 10 MG
     Route: 058
  2. AMOXICILLIN TRIHYDRATE/CLAVULANATE POTASSIUM [Concomitant]
  3. ENOXAPARIN SODIUM [Concomitant]
  4. FAMOTIDINE [Concomitant]

REACTIONS (2)
  - HALLUCINATION, AUDITORY [None]
  - HALLUCINATION, VISUAL [None]
